FAERS Safety Report 6224430-0 (Version None)
Quarter: 2009Q2

REPORT INFORMATION
  Report Type: 
  Country: None (occurrence: None)
  Receive Date: 20090612
  Receipt Date: 20090319
  Transmission Date: 20091009
  Serious: No
  Sender: FDA-Public Use
  Company Number: US-ABBOTT-09P-163-0563494-00

PATIENT
  Sex: Female
  Weight: 67.646 kg

DRUGS (5)
  1. HUMIRA [Suspect]
     Indication: PSORIASIS
     Route: 058
     Dates: start: 20090201
  2. METOPROLOL SUCCINATE [Concomitant]
     Indication: HYPERTENSION
     Route: 048
  3. AMLODIPINE BESYLATE AND BENAZEPRIL HCL [Concomitant]
     Indication: HYPERTENSION
     Dosage: 1 - 5/20 TAB DAILY
     Route: 048
  4. ASPIRIN [Concomitant]
     Indication: MYOCARDIAL INFARCTION
     Route: 048
  5. TRIAMCINOLONE [Concomitant]
     Indication: PSORIASIS
     Route: 061

REACTIONS (2)
  - PSORIASIS [None]
  - WRONG TECHNIQUE IN DRUG USAGE PROCESS [None]
